FAERS Safety Report 15785813 (Version 1)
Quarter: 2018Q4

REPORT INFORMATION
  Report Type: Spontaneous
  Country: US (occurrence: US)
  Receive Date: 20181228
  Receipt Date: 20181228
  Transmission Date: 20190205
  Serious: No
  Sender: FDA-Public Use
  Company Number: None

PATIENT

DRUGS (2)
  1. IPRATROPIUM BROMIDE. [Suspect]
     Active Substance: IPRATROPIUM BROMIDE
     Dosage: SOLUTION INHALTION UNIT DOSE VIAL 2.5 ML?
     Route: 055
  2. ASTHMANEFRIN [Suspect]
     Active Substance: RACEPINEPHRINE HYDROCHLORIDE

REACTIONS (2)
  - Intercepted product dispensing error [None]
  - Product packaging confusion [None]
